FAERS Safety Report 22060889 (Version 2)
Quarter: 2023Q1

REPORT INFORMATION
  Report Type: Spontaneous
  Country: US (occurrence: US)
  Receive Date: 20230303
  Receipt Date: 20230327
  Transmission Date: 20230418
  Serious: Yes (Hospitalization, Other)
  Sender: FDA-Public Use
  Company Number: US-BRISTOL-MYERS SQUIBB COMPANY-2023-031512

PATIENT
  Age: 80 Year
  Sex: Female
  Weight: 53.52 kg

DRUGS (11)
  1. REVLIMID [Suspect]
     Active Substance: LENALIDOMIDE
     Indication: Myelodysplastic syndrome
     Dosage: DOSE : 5MG;     FREQ : ONCE DAILY
     Route: 048
     Dates: start: 20230206, end: 20230324
  2. REVLIMID [Suspect]
     Active Substance: LENALIDOMIDE
     Indication: Kaposi^s sarcoma
  3. ANAGRELIDE [Concomitant]
     Active Substance: ANAGRELIDE
     Indication: Product used for unknown indication
     Dosage: ANAGRELIDE 0.5MG TWICE DAILY
  4. ERGOCALCIFEROL [Concomitant]
     Active Substance: ERGOCALCIFEROL
     Indication: Product used for unknown indication
     Dosage: VITAMIN D 25MCG ONCE A DAY
  5. VITAMIN B12 [Concomitant]
     Active Substance: CYANOCOBALAMIN
     Indication: Product used for unknown indication
     Dosage: VITAMIN B12 1000MCG
  6. IBUPROFEN [Concomitant]
     Active Substance: IBUPROFEN
     Indication: Product used for unknown indication
     Dosage: IBUPROFEN 200MG AS NEEDED EVERY 6 HOURS
  7. LEVOTHYROXINE [Concomitant]
     Active Substance: LEVOTHYROXINE
     Indication: Product used for unknown indication
     Dosage: LEVOTHYROXINE 75MCG DAILY
  8. ZOFRAN [Concomitant]
     Active Substance: ONDANSETRON HYDROCHLORIDE
     Indication: Product used for unknown indication
     Dosage: ZOFRAN 4MG EVERY 6 HOURS AS NEEDED
  9. PEGFILGRASTIM [Concomitant]
     Active Substance: PEGFILGRASTIM
     Indication: Product used for unknown indication
     Dosage: PEGFILGRASTIM 6MG EVERY TWO WEEKS AS NEEDED
  10. COMPAZINE [Concomitant]
     Active Substance: PROCHLORPERAZINE MALEATE
     Indication: Product used for unknown indication
     Dosage: COMPAZINE 10MG AS NEEDED EVERY 8HOURS
  11. PYRIDOXINE [Concomitant]
     Active Substance: PYRIDOXINE
     Indication: Product used for unknown indication
     Dosage: PYRIDOXINE 100MG ONCE DAILY

REACTIONS (1)
  - Embolism arterial [Not Recovered/Not Resolved]

NARRATIVE: CASE EVENT DATE: 20230223
